FAERS Safety Report 5794697-1 (Version None)
Quarter: 2008Q2

REPORT INFORMATION
  Report Type: 
  Country: None (occurrence: None)
  Receive Date: 20080630
  Receipt Date: 20080618
  Transmission Date: 20081010
  Serious: Yes (Disabling)
  Sender: FDA-Public Use
  Company Number: US-MERCK-0706USA00650

PATIENT
  Age: 55 Year
  Sex: Female
  Weight: 62 kg

DRUGS (2)
  1. FOSAMAX [Suspect]
     Indication: OSTEOPENIA
     Route: 048
     Dates: start: 20060301, end: 20060601
  2. FOSAMAX [Suspect]
     Indication: OSTEOPOROSIS
     Route: 048
     Dates: start: 20060301, end: 20060601

REACTIONS (11)
  - DENTAL CARIES [None]
  - FACIAL PAIN [None]
  - KIDNEY INFECTION [None]
  - LIVER DISORDER [None]
  - PERIODONTITIS [None]
  - PULPITIS DENTAL [None]
  - RESORPTION BONE INCREASED [None]
  - STRESS URINARY INCONTINENCE [None]
  - TOOTH LOSS [None]
  - TOOTHACHE [None]
  - URGE INCONTINENCE [None]
